FAERS Safety Report 5289476-8 (Version None)
Quarter: 2007Q2

REPORT INFORMATION
  Report Type: 
  Country: None (occurrence: None)
  Receive Date: 20070402
  Receipt Date: 20070323
  Transmission Date: 20071010
  Serious: Yes (Hospitalization)
  Sender: FDA-Public Use
  Company Number: 163-21880-07030200

PATIENT
  Age: 69 Year
  Sex: Male

DRUGS (7)
  1. REVLIMID [Suspect]
     Indication: MULTIPLE MYELOMA
     Dosage: 25 MG, 1 IN 1 D,  ORAL
     Route: 048
     Dates: start: 20070129, end: 20070301
  2. ZOMETA [Suspect]
     Indication: MULTIPLE MYELOMA
     Dates: start: 20050929, end: 20051031
  3. ZOMETA [Suspect]
     Indication: MULTIPLE MYELOMA
     Dates: start: 20060801, end: 20070112
  4. ZOMETA [Suspect]
     Indication: MULTIPLE MYELOMA
     Dates: start: 20070202
  5. DECADRON [Suspect]
     Indication: DRUG USE FOR UNKNOWN INDICATION
     Dates: start: 20070202
  6. CYTOXAN [Suspect]
     Indication: DRUG USE FOR UNKNOWN INDICATION
     Dates: start: 20070202
  7. VELCADE [Concomitant]

REACTIONS (5)
  - ANAEMIA [None]
  - FEBRILE NEUTROPENIA [None]
  - HERPES SIMPLEX [None]
  - PNEUMONIA FUNGAL [None]
  - THROMBOCYTOPENIA [None]
